FAERS Safety Report 4886008-0 (Version None)
Quarter: 2006Q1

REPORT INFORMATION
  Report Type: 
  Country: None (occurrence: None)
  Receive Date: 20060117
  Receipt Date: 20060110
  Transmission Date: 20060701
  Serious: Yes (Death, Life-Threatening)
  Sender: FDA-Public Use
  Company Number: 200509712

PATIENT
  Age: 61 Year
  Sex: Female

DRUGS (10)
  1. STREPTASE [Suspect]
     Indication: MYOCARDIAL INFARCTION
     Dosage: 1.5 MIU DAILY IV
     Route: 042
     Dates: start: 20051126, end: 20051126
  2. CLEXANE [Suspect]
     Indication: MYOCARDIAL INFARCTION
     Dosage: 0.8 ML BID SC
     Route: 058
     Dates: start: 20051126, end: 20051129
  3. FURON [Concomitant]
  4. CITALOPRAM HYDROBROMIDE [Concomitant]
  5. CONCOR [Concomitant]
  6. MONOPRIL [Concomitant]
  7. TORVACARD [Concomitant]
  8. SORBIMON [Concomitant]
  9. NITROGLYCERIN [Concomitant]
  10. MILURIT [Concomitant]

REACTIONS (10)
  - APALLIC SYNDROME [None]
  - BRAIN OEDEMA [None]
  - CARDIAC ARREST [None]
  - CEREBRAL HAEMATOMA [None]
  - CEREBRAL HAEMORRHAGE [None]
  - CEREBRAL ISCHAEMIA [None]
  - DRUG INTERACTION [None]
  - MYOCARDIAL INFARCTION [None]
  - SHOCK [None]
  - THYROID DISORDER [None]
